FAERS Safety Report 8015381-X (Version None)
Quarter: 2011Q4

REPORT INFORMATION
  Report Type: 
  Country: None (occurrence: None)
  Receive Date: 20111230
  Receipt Date: 20111227
  Transmission Date: 20120403
  Serious: Yes (Other)
  Sender: FDA-Public Use
  Company Number: PR-BAYER-2011-123856

PATIENT
  Age: 67 Year
  Sex: Male

DRUGS (1)
  1. NEXAVAR [Suspect]
     Indication: HEPATIC NEOPLASM MALIGNANT
     Dosage: 400 MG, BID
     Route: 048
     Dates: start: 20111217, end: 20111223

REACTIONS (5)
  - HYPERTENSION [None]
  - HYPOAESTHESIA [None]
  - ABASIA [None]
  - DECREASED APPETITE [None]
  - LETHARGY [None]
